FAERS Safety Report 5150238-3 (Version None)
Quarter: 2006Q4

REPORT INFORMATION
  Report Type: 
  Country: None (occurrence: None)
  Receive Date: 20061108
  Receipt Date: 20061026
  Transmission Date: 20070319
  Serious: Yes (Other)
  Sender: FDA-Public Use
  Company Number: 2006132680

PATIENT
  Age: 39 Year
  Sex: Male

DRUGS (3)
  1. DILANTIN [Suspect]
     Indication: CONVULSION
  2. TEMODAR [Suspect]
     Indication: OLIGODENDROGLIOMA
     Dosage: 450 MG 9450 MG, 1 IN 1 D), ORAL
     Route: 048
     Dates: start: 20060301
  3. ALCOHOL (ETHANOL0 [Suspect]

REACTIONS (3)
  - ALCOHOL USE [None]
  - ANTICONVULSANT DRUG LEVEL BELOW THERAPEUTIC [None]
  - GRAND MAL CONVULSION [None]
